FAERS Safety Report 20725105 (Version 1)
Quarter: 2022Q2

REPORT INFORMATION
  Report Type: Spontaneous
  Country: US (occurrence: US)
  Receive Date: 20220419
  Receipt Date: 20220419
  Transmission Date: 20220721
  Serious: No
  Sender: FDA-Public Use
  Company Number: US-PFIZER INC-202200164723

PATIENT
  Age: 63 Year
  Sex: Female

DRUGS (1)
  1. IBRANCE [Suspect]
     Active Substance: PALBOCICLIB
     Dosage: UNK
     Dates: start: 201911

REACTIONS (5)
  - Hypoaesthesia [Unknown]
  - Bone density decreased [Unknown]
  - Gait disturbance [Unknown]
  - Balance disorder [Unknown]
  - Pain [Unknown]
